FAERS Safety Report 5430400-2 (Version None)
Quarter: 2007Q3

REPORT INFORMATION
  Report Type: 
  Country: None (occurrence: None)
  Receive Date: 20070828
  Receipt Date: 20070815
  Transmission Date: 20080115
  Serious: Yes (Hospitalization)
  Sender: FDA-Public Use
  Company Number: 2007BI014881

PATIENT
  Age: 61 Year
  Sex: Female
  Weight: 90.2658 kg

DRUGS (1)
  1. NATALIZUMAB [Suspect]
     Indication: MULTIPLE SCLEROSIS
     Dosage: 300 MG;QM;IV
     Route: 042
     Dates: start: 20070101

REACTIONS (6)
  - BLOOD DISORDER [None]
  - HALLUCINATION [None]
  - HEPATIC INFECTION [None]
  - INFECTION [None]
  - MIGRAINE [None]
  - URINARY TRACT INFECTION [None]
